FAERS Safety Report 7751030-3 (Version None)
Quarter: 2011Q3

REPORT INFORMATION
  Report Type: 
  Country: None (occurrence: None)
  Receive Date: 20110914
  Receipt Date: 20110303
  Transmission Date: 20111222
  Serious: No
  Sender: FDA-Public Use
  Company Number: US-MYLANLABS-2011S1004447

PATIENT
  Age: 33 Year
  Sex: Female
  Weight: 63.5 kg

DRUGS (1)
  1. BUTORPHANOL TARTRATE [Suspect]
     Indication: MIGRAINE
     Route: 045
     Dates: start: 20050101

REACTIONS (5)
  - FEELING JITTERY [None]
  - HEART RATE INCREASED [None]
  - PERSONALITY CHANGE [None]
  - NAUSEA [None]
  - DYSGEUSIA [None]
